FAERS Safety Report 16766267 (Version 3)
Quarter: 2019Q4

REPORT INFORMATION
  Report Type: Spontaneous
  Country: US (occurrence: US)
  Receive Date: 20190903
  Receipt Date: 20191114
  Transmission Date: 20200122
  Serious: Yes (Hospitalization, Other)
  Sender: FDA-Public Use
  Company Number: US-PFIZER INC-2019370780

PATIENT
  Age: 66 Year
  Sex: Male
  Weight: 81.63 kg

DRUGS (1)
  1. SUTENT [Suspect]
     Active Substance: SUNITINIB MALATE
     Indication: MALIGNANT NEOPLASM OF THYMUS
     Dosage: 37.5 MG, CYCLIC (TAKE 1 TABLET EVERY DAY FOR 4 WKS THEN 2 WKS OFF)
     Dates: start: 20190830

REACTIONS (5)
  - Product use in unapproved indication [Unknown]
  - Off label use [Unknown]
  - Muscle spasms [Unknown]
  - Abdominal discomfort [Unknown]
  - Neuropathy peripheral [Not Recovered/Not Resolved]
